FAERS Safety Report 14364344 (Version 1)
Quarter: 2018Q1

REPORT INFORMATION
  Report Type: Spontaneous
  Country: CN (occurrence: CN)
  Receive Date: 20180108
  Receipt Date: 20180108
  Transmission Date: 20180509
  Serious: Yes (Other)
  Sender: FDA-Public Use
  Company Number: CN-PFIZER INC-2018003793

PATIENT
  Age: 25 Year
  Sex: Female
  Weight: 68.5 kg

DRUGS (4)
  1. SODIUM CHLORIDE. [Concomitant]
     Active Substance: SODIUM CHLORIDE
     Indication: VEHICLE SOLUTION USE
     Dosage: 100 ML, 2X/DAY
     Route: 041
     Dates: start: 20171107, end: 20171121
  2. TAZOCIN [Suspect]
     Active Substance: PIPERACILLIN SODIUM\TAZOBACTAM SODIUM
     Indication: INTRAUTERINE INFECTION
     Dosage: 4.5 G, 3X/DAY
     Route: 041
     Dates: start: 20171107, end: 20171121
  3. SODIUM CHLORIDE. [Concomitant]
     Active Substance: SODIUM CHLORIDE
     Dosage: 250 ML, 3X/DAY
     Route: 041
     Dates: start: 20171107, end: 20171121
  4. TIGECYCLINE. [Suspect]
     Active Substance: TIGECYCLINE
     Indication: INTRAUTERINE INFECTION
     Dosage: 50 MG, 2X/DAY
     Route: 041
     Dates: start: 20171107, end: 20171121

REACTIONS (3)
  - Bone marrow failure [Recovered/Resolved]
  - Neutrophil count decreased [Recovered/Resolved]
  - White blood cell count decreased [Recovered/Resolved]

NARRATIVE: CASE EVENT DATE: 20171121
